FAERS Safety Report 19123308 (Version 1)
Quarter: 2021Q2

REPORT INFORMATION
  Report Type: Report from Study
  Country: US (occurrence: US)
  Receive Date: 20210412
  Receipt Date: 20210412
  Transmission Date: 20210717
  Serious: Yes (Death, Other)
  Sender: FDA-Public Use
  Company Number: US-TAKEDA-US-001271

PATIENT
  Sex: Female
  Weight: 39 kg

DRUGS (24)
  1. DURAGESIC [Concomitant]
     Active Substance: FENTANYL
     Dosage: 100 MICROGRAM/ HR
  2. TEDUGLUTIDE [Suspect]
     Active Substance: TEDUGLUTIDE
     Indication: SHORT-BOWEL SYNDROME
     Dosage: 0.21 DOSAGE FORM, QD
     Route: 058
     Dates: start: 20131228
  3. TEDUGLUTIDE [Suspect]
     Active Substance: TEDUGLUTIDE
     Indication: IMMUNODEFICIENCY
     Dosage: 1.95 DOSAGE FORM, QD
     Route: 058
  4. TEDUGLUTIDE [Suspect]
     Active Substance: TEDUGLUTIDE
     Indication: IMMUNODEFICIENCY
     Dosage: 1.95 DOSAGE FORM, QD
     Route: 058
  5. TEDUGLUTIDE [Suspect]
     Active Substance: TEDUGLUTIDE
     Dosage: 1.95 MILLIGRAM
     Route: 058
  6. PROTONIX [OMEPRAZOLE] [Concomitant]
     Active Substance: OMEPRAZOLE
     Dosage: 40 MILLIGRAM
  7. TEDUGLUTIDE [Suspect]
     Active Substance: TEDUGLUTIDE
     Indication: SHORT-BOWEL SYNDROME
     Dosage: 0.21 DOSAGE FORM, QD
     Route: 058
     Dates: start: 20131228
  8. TEDUGLUTIDE [Suspect]
     Active Substance: TEDUGLUTIDE
     Indication: IMMUNODEFICIENCY
     Dosage: 1.95 DOSAGE FORM, QD
     Route: 058
  9. HYDROXYZINE HCL [Concomitant]
     Active Substance: HYDROXYZINE HYDROCHLORIDE
     Dosage: 10 MILLIGRAM
  10. PLAVIX [Concomitant]
     Active Substance: CLOPIDOGREL BISULFATE
     Dosage: 75 MILLIGRAM
  11. PROAIR HFA [Concomitant]
     Active Substance: ALBUTEROL SULFATE
     Dosage: 90 MICROGRAM, HFA AER AD
  12. TEDUGLUTIDE [Suspect]
     Active Substance: TEDUGLUTIDE
     Indication: SHORT-BOWEL SYNDROME
     Dosage: 0.21 DOSAGE FORM, QD
     Route: 058
     Dates: start: 20131228
  13. NORCO [Concomitant]
     Active Substance: ACETAMINOPHEN\HYDROCODONE BITARTRATE
     Dosage: 10MG?325MG
  14. TEDUGLUTIDE [Suspect]
     Active Substance: TEDUGLUTIDE
     Dosage: 1.95 MILLIGRAM
     Route: 058
  15. TEDUGLUTIDE [Suspect]
     Active Substance: TEDUGLUTIDE
     Indication: SHORT-BOWEL SYNDROME
     Dosage: 0.21 DOSAGE FORM, QD
     Route: 058
     Dates: start: 20131228
  16. TEDUGLUTIDE [Suspect]
     Active Substance: TEDUGLUTIDE
     Indication: IMMUNODEFICIENCY
     Dosage: 1.95 DOSAGE FORM, QD
     Route: 058
  17. TEDUGLUTIDE [Suspect]
     Active Substance: TEDUGLUTIDE
     Dosage: 1.95 MILLIGRAM
     Route: 058
  18. TEDUGLUTIDE [Suspect]
     Active Substance: TEDUGLUTIDE
     Dosage: 1.95 MILLIGRAM
     Route: 058
  19. ADVAIR HFA [Concomitant]
     Active Substance: FLUTICASONE PROPIONATE\SALMETEROL XINAFOATE
     Dosage: 250?50 DISKUS
  20. VITAMIN D3 [Concomitant]
     Active Substance: CHOLECALCIFEROL
  21. BONIVA [Concomitant]
     Active Substance: IBANDRONATE SODIUM
     Dosage: 3 MG/3 ML
  22. ZOFRAN [Concomitant]
     Active Substance: ONDANSETRON HYDROCHLORIDE
     Dosage: 4 MILLIGRAM
  23. ASPIRIN [ACETYLSALICYLIC ACID] [Concomitant]
     Active Substance: ASPIRIN
     Dosage: 325 MILLIGRAM
  24. OCTREOTIDE. [Concomitant]
     Active Substance: OCTREOTIDE
     Dosage: 1000 MICROGRAM/ML

REACTIONS (8)
  - Rectal discharge [Not Recovered/Not Resolved]
  - Fatigue [Not Recovered/Not Resolved]
  - Constipation [Unknown]
  - Inappropriate schedule of product administration [Unknown]
  - Stress [Unknown]
  - Death [Fatal]
  - Diarrhoea [Recovered/Resolved]
  - Illness [Recovered/Resolved]
